FAERS Safety Report 10872893 (Version 1)
Quarter: 2015Q1

REPORT INFORMATION
  Report Type: Spontaneous
  Country: US (occurrence: US)
  Receive Date: 20150227
  Receipt Date: 20150227
  Transmission Date: 20150721
  Serious: No
  Sender: FDA-Public Use
  Company Number: US-DRREDDYS-USA/USA/14/0040462

PATIENT
  Age: 59 Year
  Sex: Male

DRUGS (1)
  1. CETIRIZINE [Suspect]
     Active Substance: CETIRIZINE HYDROCHLORIDE
     Indication: HYPERSENSITIVITY
     Dosage: 10 MG ONCE DAILY AS NEEDED
     Route: 048

REACTIONS (4)
  - Product commingling [Unknown]
  - No adverse event [Unknown]
  - Product quality issue [Unknown]
  - Expired product administered [Unknown]
